FAERS Safety Report 22143202 (Version 1)
Quarter: 2023Q1

REPORT INFORMATION
  Report Type: Spontaneous
  Country: SE (occurrence: SE)
  Receive Date: 20230327
  Receipt Date: 20230327
  Transmission Date: 20230418
  Serious: Yes (Death)
  Sender: FDA-Public Use
  Company Number: SE-BAYER-2023A036076

PATIENT
  Age: 57 Year
  Sex: Male

DRUGS (2)
  1. XOFIGO [Suspect]
     Active Substance: RADIUM RA-223 DICHLORIDE
     Indication: Hormone-refractory prostate cancer
     Dosage: UNK
  2. RADX [Concomitant]
     Active Substance: LIDOCAINE

REACTIONS (2)
  - Death [Fatal]
  - Pain [None]
